FAERS Safety Report 24864702 (Version 2)
Quarter: 2025Q1

REPORT INFORMATION
  Report Type: Spontaneous
  Country: RO (occurrence: RO)
  Receive Date: 20250121
  Receipt Date: 20250207
  Transmission Date: 20250408
  Serious: Yes (Other)
  Sender: SANDOZ
  Company Number: RO-BAXTER-2025BAX010010

PATIENT
  Age: 66 Year
  Sex: Female

DRUGS (11)
  1. ALKERAN [Suspect]
     Active Substance: MELPHALAN
     Indication: Breast cancer
     Route: 065
  2. ALKERAN [Suspect]
     Active Substance: MELPHALAN
     Indication: Plasma cell myeloma
  3. BORTEZOMIB [Suspect]
     Active Substance: BORTEZOMIB
     Route: 065
  4. BORTEZOMIB [Suspect]
     Active Substance: BORTEZOMIB
     Indication: Breast cancer
     Route: 065
     Dates: end: 201703
  5. BORTEZOMIB [Suspect]
     Active Substance: BORTEZOMIB
     Indication: Plasma cell myeloma
     Route: 065
  6. CYCLOPHOSPHAMIDE [Suspect]
     Active Substance: CYCLOPHOSPHAMIDE
     Indication: Breast cancer
     Route: 065
  7. CYCLOPHOSPHAMIDE [Suspect]
     Active Substance: CYCLOPHOSPHAMIDE
     Indication: Plasma cell myeloma
     Route: 065
     Dates: end: 201703
  8. DECADRON (DEXAMETHASONE SODIUM PHOSPHATE) [Suspect]
     Active Substance: DEXAMETHASONE SODIUM PHOSPHATE
     Indication: Plasma cell myeloma
     Route: 065
  9. DECADRON (DEXAMETHASONE SODIUM PHOSPHATE) [Suspect]
     Active Substance: DEXAMETHASONE SODIUM PHOSPHATE
     Indication: Breast cancer
     Route: 065
  10. METHOTREXATE [Suspect]
     Active Substance: METHOTREXATE
     Indication: Plasma cell myeloma
     Route: 065
  11. METHOTREXATE [Suspect]
     Active Substance: METHOTREXATE
     Indication: Breast cancer

REACTIONS (9)
  - Acute promyelocytic leukaemia [Recovered/Resolved]
  - Leukopenia [Recovered/Resolved]
  - Neutropenia [Recovered/Resolved]
  - Thrombocytopenia [Recovered/Resolved]
  - Fatigue [Recovered/Resolved]
  - Asthenia [Recovered/Resolved]
  - Disease recurrence [Unknown]
  - Toxicity to various agents [Unknown]
  - Acute promyelocytic leukaemia [Unknown]

NARRATIVE: CASE EVENT DATE: 20210701
